FAERS Safety Report 5160359-7 (Version None)
Quarter: 2006Q4

REPORT INFORMATION
  Report Type: 
  Country: None (occurrence: None)
  Receive Date: 20061129
  Receipt Date: 20060711
  Transmission Date: 20070319
  Serious: Yes (Life-Threatening, Hospitalization)
  Sender: FDA-Public Use
  Company Number: FR-SANOFI-SYNTHELABO-F01200601627

PATIENT
  Sex: Male

DRUGS (2)
  1. CAPECITABINE [Suspect]
     Dosage: FOR FIVE DAYS PER WEEK
     Route: 048
  2. OXALIPLATIN [Suspect]
     Indication: RECTAL CANCER
     Route: 042

REACTIONS (18)
  - ACID BASE BALANCE [None]
  - ACID BASE BALANCE ABNORMAL [None]
  - ANAEMIA [None]
  - CEREBROVASCULAR ACCIDENT [None]
  - COLITIS [None]
  - DYSPHAGIA [None]
  - GENERAL PHYSICAL HEALTH DETERIORATION [None]
  - HAEMATOTOXICITY [None]
  - HAEMORRHAGIC STROKE [None]
  - ISCHAEMIC STROKE [None]
  - LOCKED-IN SYNDROME [None]
  - MALNUTRITION [None]
  - MUCOSAL INFLAMMATION [None]
  - NEUTROPENIA [None]
  - PSEUDOMONAL SEPSIS [None]
  - RENAL FAILURE [None]
  - SEPTIC SHOCK [None]
  - THROMBOCYTOPENIA [None]
